FAERS Safety Report 16815304 (Version 1)
Quarter: 2019Q3

REPORT INFORMATION
  Report Type: Spontaneous
  Country: US (occurrence: US)
  Receive Date: 20190917
  Receipt Date: 20190917
  Transmission Date: 20191005
  Serious: Yes (Hospitalization)
  Sender: FDA-Public Use
  Company Number: US-SA-2019SA257027

PATIENT
  Age: 13 Year
  Sex: Female

DRUGS (9)
  1. DUPIXENT [Suspect]
     Active Substance: DUPILUMAB
     Dosage: 300 MG, QOW
  2. ONDANSETRON [Concomitant]
     Active Substance: ONDANSETRON
  3. CEFDINIR. [Concomitant]
     Active Substance: CEFDINIR
  4. DUPIXENT [Suspect]
     Active Substance: DUPILUMAB
     Indication: ASTHMA
     Dosage: 600 MG, 1X
  5. BUDESONIDE. [Concomitant]
     Active Substance: BUDESONIDE
  6. ADVAIR HFA [Concomitant]
     Active Substance: FLUTICASONE PROPIONATE\SALMETEROL XINAFOATE
  7. PREDNISONE. [Concomitant]
     Active Substance: PREDNISONE
  8. PROAIR RESPICLICK [Concomitant]
     Active Substance: ALBUTEROL SULFATE
  9. QVAR REDIHALER [Concomitant]
     Active Substance: BECLOMETHASONE DIPROPIONATE

REACTIONS (1)
  - Asthma [Unknown]
